FAERS Safety Report 18625948 (Version 1)
Quarter: 2020Q4

REPORT INFORMATION
  Report Type: Spontaneous
  Country: FI (occurrence: FI)
  Receive Date: 20201216
  Receipt Date: 20201216
  Transmission Date: 20210114
  Serious: Yes (Hospitalization, Other)
  Sender: FDA-Public Use
  Company Number: FI-ELI_LILLY_AND_COMPANY-FI202012005339

PATIENT
  Age: 68 Year
  Sex: Male

DRUGS (4)
  1. CISPLATIN. [Suspect]
     Active Substance: CISPLATIN
     Indication: PRODUCT USED FOR UNKNOWN INDICATION
     Dosage: UNK UNK, CYCLICAL
     Route: 065
     Dates: start: 20200303, end: 20201006
  2. KEYTRUDA [Suspect]
     Active Substance: PEMBROLIZUMAB
     Indication: LARGE CELL LUNG CANCER
     Dosage: ABOUT EVERY 3 WEEKS
     Route: 065
     Dates: start: 20200303, end: 20201006
  3. PEMETREXED. [Suspect]
     Active Substance: PEMETREXED
     Indication: PRODUCT USED FOR UNKNOWN INDICATION
     Dosage: UNK UNK, CYCLICAL
     Route: 065
     Dates: start: 20200303, end: 20201006
  4. CARBOPLATIN. [Suspect]
     Active Substance: CARBOPLATIN
     Indication: PRODUCT USED FOR UNKNOWN INDICATION
     Dosage: UNK UNK, CYCLICAL
     Route: 065
     Dates: start: 20200303, end: 20201006

REACTIONS (12)
  - Neutropenia [Unknown]
  - Pneumonia [Unknown]
  - Myelosuppression [Unknown]
  - C-reactive protein increased [Unknown]
  - Pancytopenia [Unknown]
  - Renal failure [Unknown]
  - Off label use [Unknown]
  - Malignant neoplasm progression [Unknown]
  - Anaemia [Unknown]
  - Blood creatinine increased [Unknown]
  - Asthenia [Unknown]
  - Myositis [Recovered/Resolved]

NARRATIVE: CASE EVENT DATE: 2020
